FAERS Safety Report 22065983 (Version 1)
Quarter: 2023Q1

REPORT INFORMATION
  Report Type: Spontaneous
  Country: CN (occurrence: CN)
  Receive Date: 20230306
  Receipt Date: 20230306
  Transmission Date: 20230418
  Serious: Yes (Hospitalization)
  Sender: FDA-Public Use
  Company Number: CN-Merck Healthcare KGaA-9385371

PATIENT
  Age: 57 Year
  Sex: Female
  Weight: 59 kg

DRUGS (9)
  1. ERBITUX [Suspect]
     Active Substance: CETUXIMAB
     Indication: Gastrointestinal carcinoma
     Dosage: 700 MG, DAILY
     Route: 041
     Dates: start: 20230201, end: 20230201
  2. FLUOROURACIL [Suspect]
     Active Substance: FLUOROURACIL
     Indication: Gastrointestinal carcinoma
     Dosage: 0.6 G, DAILY
     Route: 042
     Dates: start: 20230201, end: 20230201
  3. FLUOROURACIL [Suspect]
     Active Substance: FLUOROURACIL
     Dosage: 3.75 G, DAILY
     Route: 042
     Dates: start: 20230201, end: 20230201
  4. OXALIPLATIN [Suspect]
     Active Substance: OXALIPLATIN
     Indication: Gastrointestinal carcinoma
     Dosage: 130 MG, DAILY
     Route: 041
     Dates: start: 20230201, end: 20230201
  5. LEUCOVORIN CALCIUM [Concomitant]
     Active Substance: LEUCOVORIN CALCIUM
     Indication: Gastrointestinal carcinoma
     Dosage: 300 MG, DAILY
     Route: 041
     Dates: start: 20230201, end: 20230201
  6. SODIUM CHLORIDE [Concomitant]
     Active Substance: SODIUM CHLORIDE
     Indication: Medication dilution
     Dosage: 150 ML, DAILY
     Route: 041
     Dates: start: 20230201, end: 20230201
  7. DEXTROSE [Concomitant]
     Active Substance: DEXTROSE
     Indication: Medication dilution
     Dosage: 250 ML, DAILY
     Route: 041
     Dates: start: 20230201, end: 20230201
  8. DEXTROSE [Concomitant]
     Active Substance: DEXTROSE
     Dosage: 20 ML, DAILY
     Route: 042
     Dates: start: 20230201, end: 20230201
  9. DEXTROSE [Concomitant]
     Active Substance: DEXTROSE
     Dosage: 230 ML, DAILY
     Route: 055
     Dates: start: 20230201, end: 20230201

REACTIONS (1)
  - Myelosuppression [Recovered/Resolved]

NARRATIVE: CASE EVENT DATE: 20230216
